FAERS Safety Report 7083955-9 (Version None)
Quarter: 2010Q4

REPORT INFORMATION
  Report Type: 
  Country: None (occurrence: None)
  Receive Date: 20101104
  Receipt Date: 20101025
  Transmission Date: 20110411
  Serious: Yes (Hospitalization)
  Sender: FDA-Public Use
  Company Number: DE-TEVA-252655GER

PATIENT
  Age: 84 Year
  Sex: Male
  Weight: 84 kg

DRUGS (7)
  1. BACTRIM [Suspect]
     Indication: URINARY TRACT INFECTION
     Dosage: 2X800 MG SULFAMETHOXAZOLE PLUS 2X160 MG TRIMETHOPRIM DAILY
     Route: 048
     Dates: start: 20100606, end: 20100618
  2. ESOMEPRAZOLE [Interacting]
     Indication: REFLUX OESOPHAGITIS
     Route: 048
  3. TORASEMIDE [Concomitant]
     Indication: CARDIAC FAILURE
     Route: 048
  4. METHIMAZOLE [Concomitant]
     Indication: HYPERTHYROIDISM
     Route: 048
     Dates: end: 20100907
  5. TIOTROPIUM BROMIDE [Concomitant]
     Indication: CHRONIC OBSTRUCTIVE PULMONARY DISEASE
     Route: 055
  6. PHENPROCOUMON [Concomitant]
     Indication: ATRIAL FIBRILLATION
     Route: 048
  7. BISOPROLOL [Concomitant]
     Indication: HYPERTENSION
     Route: 048

REACTIONS (5)
  - CLOSTRIDIUM DIFFICILE COLITIS [None]
  - DRUG INTERACTION [None]
  - DYSPNOEA [None]
  - PLEURAL EFFUSION [None]
  - PULMONARY CONGESTION [None]
